FAERS Safety Report 6265304-9 (Version None)
Quarter: 2009Q3

REPORT INFORMATION
  Report Type: 
  Country: None (occurrence: None)
  Receive Date: 20090713
  Receipt Date: 20090702
  Transmission Date: 20100115
  Serious: Yes (Hospitalization)
  Sender: FDA-Public Use
  Company Number: GB-BAYER-200912642BNE

PATIENT

DRUGS (1)
  1. MABCAMPATH [Suspect]
     Indication: DRUG USE FOR UNKNOWN INDICATION

REACTIONS (3)
  - ASCITES [None]
  - MUSCULAR WEAKNESS [None]
  - OEDEMA PERIPHERAL [None]
